FAERS Safety Report 6088945-0 (Version None)
Quarter: 2009Q1

REPORT INFORMATION
  Report Type: 
  Country: None (occurrence: None)
  Receive Date: 20090219
  Receipt Date: 20090219
  Transmission Date: 20090719
  Serious: No
  Sender: FDA-Public Use
  Company Number: None

PATIENT
  Age: 68 Year
  Sex: Male
  Weight: 107.9561 kg

DRUGS (2)
  1. DILTIAZEM HYDROCHLORIDE [Suspect]
     Indication: BLOOD PRESSURE
     Dosage: 1 PER DAY
     Dates: start: 20080101, end: 20090201
  2. DILTIAZEM HYDROCHLORIDE [Suspect]
     Indication: CARDIAC DISORDER
     Dosage: 1 PER DAY
     Dates: start: 20080101, end: 20090201

REACTIONS (6)
  - JOINT SWELLING [None]
  - MASS [None]
  - SWELLING [None]
  - THROMBOSIS [None]
  - URTICARIA [None]
  - VENOUS THROMBOSIS [None]
